FAERS Safety Report 4394652-2 (Version None)
Quarter: 2004Q3

REPORT INFORMATION
  Report Type: 
  Country: None (occurrence: None)
  Receive Date: 20040707
  Receipt Date: 20040621
  Transmission Date: 20050211
  Serious: Yes (Hospitalization, Other)
  Sender: FDA-Public Use
  Company Number: US-JNJFOC-20040301723

PATIENT
  Age: 56 Year
  Sex: Female

DRUGS (15)
  1. DURAGESIC [Suspect]
     Indication: PAIN
     Dosage: SEE IMAGE
     Route: 062
     Dates: start: 20030901, end: 20031101
  2. DURAGESIC [Suspect]
     Indication: PAIN
     Dosage: SEE IMAGE
     Route: 062
     Dates: start: 20031101, end: 20040101
  3. DURAGESIC [Suspect]
     Indication: PAIN
     Dosage: SEE IMAGE
     Route: 062
     Dates: start: 20040101, end: 20040301
  4. DURAGESIC [Suspect]
     Indication: PAIN
     Dosage: SEE IMAGE
     Route: 062
     Dates: start: 20040301
  5. VICODIN [Concomitant]
  6. MORPHINE [Concomitant]
  7. PERCOCET [Concomitant]
  8. LOTENSIN [Concomitant]
  9. NORVASC [Concomitant]
  10. SYNTHROID [Concomitant]
  11. AMBIEN [Concomitant]
  12. CRESTON (ALL OTHER THERAPEUTIC PRODUCTS) [Concomitant]
  13. ACIPHEX (REBEPRAZOLE SODIUM) [Concomitant]
  14. PREVACID [Concomitant]
  15. ASPIRIN [Concomitant]

REACTIONS (23)
  - ARTHRALGIA [None]
  - CHEST PAIN [None]
  - CORONARY ARTERY OCCLUSION [None]
  - DRUG INEFFECTIVE [None]
  - DYSPHAGIA [None]
  - GASTROOESOPHAGEAL REFLUX DISEASE [None]
  - GLOSSODYNIA [None]
  - INCISION SITE COMPLICATION [None]
  - INTERVERTEBRAL DISC PROTRUSION [None]
  - MALAISE [None]
  - MIGRAINE [None]
  - MUSCLE SPASMS [None]
  - MYOFASCIAL PAIN SYNDROME [None]
  - NAUSEA [None]
  - NEURALGIA [None]
  - PAIN [None]
  - PAIN IN EXTREMITY [None]
  - RADICULAR PAIN [None]
  - SENSORY DISTURBANCE [None]
  - SPINAL DISORDER [None]
  - SWELLING [None]
  - TENDERNESS [None]
  - VOMITING [None]
